FAERS Safety Report 18905780 (Version 2)
Quarter: 2021Q1

REPORT INFORMATION
  Report Type: Report from Study
  Country: CA (occurrence: CA)
  Receive Date: 20210217
  Receipt Date: 20210302
  Transmission Date: 20210420
  Serious: Yes (Other)
  Sender: FDA-Public Use
  Company Number: CA-TAKEDA-2020TUS058753

PATIENT
  Age: 63 Year
  Sex: Male

DRUGS (1)
  1. VEDOLIZUMAB [Suspect]
     Active Substance: VEDOLIZUMAB
     Indication: CROHN^S DISEASE
     Dosage: 300 MILLIGRAM
     Route: 042
     Dates: start: 20200904, end: 20201231

REACTIONS (4)
  - Asthenia [Unknown]
  - Frequent bowel movements [Unknown]
  - Drug level abnormal [Unknown]
  - Intestinal resection [Unknown]

NARRATIVE: CASE EVENT DATE: 20201215
